FAERS Safety Report 10685112 (Version 1)
Quarter: 2014Q4

REPORT INFORMATION
  Report Type: Spontaneous
  Country: US (occurrence: None)
  Receive Date: 20141230
  Receipt Date: 20141230
  Transmission Date: 20150529
  Serious: No
  Sender: FDA-Public Use
  Company Number: None

PATIENT
  Age: 80 Year
  Sex: Female
  Weight: 86.18 kg

DRUGS (1)
  1. MYRBETRIQ [Suspect]
     Active Substance: MIRABEGRON
     Indication: BLADDER DISORDER
     Dosage: 25 MG 1 PILL ONCE DAILY, IN PM, BY MOUTH
     Route: 048
     Dates: start: 20141205, end: 20141208

REACTIONS (2)
  - Tremor [None]
  - Middle insomnia [None]

NARRATIVE: CASE EVENT DATE: 20141205
